FAERS Safety Report 6491975-8 (Version None)
Quarter: 2009Q4

REPORT INFORMATION
  Report Type: 
  Country: None (occurrence: None)
  Receive Date: 20091125
  Receipt Date: 20090916
  Transmission Date: 20100525
  Serious: Yes (Hospitalization)
  Sender: FDA-Public Use
  Company Number: 2009BH014332

PATIENT
  Age: 30 Year
  Sex: Female

DRUGS (7)
  1. DIANEAL [Suspect]
     Indication: PERITONEAL DIALYSIS
     Dosage: 8 L ; EVERY DAY ; IP
     Route: 033
     Dates: start: 20090401
  2. NEPHROCAPS [Concomitant]
  3. FOSINOPRIL SODIUM [Concomitant]
  4. METOCLOPRAMIDE [Concomitant]
  5. HYDROCHLORIDE [Concomitant]
  6. PANTOPRAZOLE SODIUM [Concomitant]
  7. PROMETHAZINE [Concomitant]

REACTIONS (1)
  - ABDOMINAL PAIN [None]
